FAERS Safety Report 5167863-6 (Version None)
Quarter: 2006Q4

REPORT INFORMATION
  Report Type: 
  Country: None (occurrence: None)
  Receive Date: 20061130
  Receipt Date: 20061102
  Transmission Date: 20070319
  Serious: Yes (Other)
  Sender: FDA-Public Use
  Company Number: 2006140502

PATIENT
  Sex: Male

DRUGS (2)
  1. CELEBREX [Suspect]
     Dates: start: 20041009, end: 20041102
  2. VIOXX [Suspect]
     Dates: start: 20040305, end: 20040908

REACTIONS (1)
  - VASCULAR OCCLUSION [None]
